FAERS Safety Report 7253670-7 (Version None)
Quarter: 2011Q1

REPORT INFORMATION
  Report Type: 
  Country: None (occurrence: None)
  Receive Date: 20110129
  Receipt Date: 20100127
  Transmission Date: 20110831
  Serious: No
  Sender: FDA-Public Use
  Company Number: US-ABBOTT-10P-163-0623328-00

PATIENT
  Sex: Female
  Weight: 60.382 kg

DRUGS (7)
  1. IMURAN [Concomitant]
     Indication: CROHN'S DISEASE
     Dosage: 100MG DAILY
     Route: 048
  2. HUMIRA [Suspect]
     Indication: CROHN'S DISEASE
     Route: 058
     Dates: start: 20090901, end: 20090901
  3. HUMIRA [Suspect]
     Route: 058
  4. HUMIRA [Suspect]
     Route: 058
     Dates: end: 20100101
  5. MICRONOR [Concomitant]
     Indication: CONTRACEPTION
  6. SETRAN IRON [Concomitant]
     Indication: ANAEMIA
  7. NEXIUM [Concomitant]
     Indication: GASTROOESOPHAGEAL REFLUX DISEASE
     Route: 048

REACTIONS (7)
  - HEADACHE [None]
  - ORAL PRURITUS [None]
  - OEDEMA MOUTH [None]
  - PARAESTHESIA ORAL [None]
  - SWOLLEN TONGUE [None]
  - LIP SWELLING [None]
  - PRURITUS [None]
